FAERS Safety Report 8121783-3 (Version None)
Quarter: 2012Q1

REPORT INFORMATION
  Report Type: 
  Country: None (occurrence: None)
  Receive Date: 20120208
  Receipt Date: 20120202
  Transmission Date: 20120608
  Serious: Yes (Death, Life-Threatening, Hospitalization)
  Sender: FDA-Public Use
  Company Number: JP-CELGENEUS-087-21880-11051186

PATIENT
  Sex: Male
  Weight: 56.25 kg

DRUGS (12)
  1. PURSENNID [Concomitant]
     Indication: ILL-DEFINED DISORDER
     Dosage: 24 MILLIGRAM
     Route: 048
     Dates: start: 20110322, end: 20110416
  2. HALOPERIDOL [Concomitant]
     Indication: ILL-DEFINED DISORDER
     Dosage: 5 MILLIGRAM
     Route: 041
     Dates: start: 20110417, end: 20110420
  3. MAGMITT [Concomitant]
     Indication: ILL-DEFINED DISORDER
     Dosage: 1980 MILLIGRAM
     Route: 048
     Dates: start: 20110322, end: 20110416
  4. TIAPRIM [Concomitant]
     Indication: ILL-DEFINED DISORDER
     Dosage: 150 MILLIGRAM
     Route: 048
     Dates: start: 20110415, end: 20110416
  5. ANPEC [Concomitant]
     Indication: MULTIPLE MYELOMA
     Dosage: 20 MILLIGRAM
     Route: 041
     Dates: start: 20110420, end: 20110425
  6. REVLIMID [Suspect]
     Indication: MULTIPLE MYELOMA
     Dosage: 10 MILLIGRAM
     Route: 048
     Dates: start: 20110322, end: 20110411
  7. RISPERIDONE [Concomitant]
     Indication: ILL-DEFINED DISORDER
     Dosage: 1 MILLIGRAM
     Route: 048
     Dates: start: 20110404, end: 20110419
  8. ASPIRIN [Concomitant]
     Indication: ILL-DEFINED DISORDER
     Dosage: 100 MILLIGRAM
     Route: 048
     Dates: start: 20110322, end: 20110417
  9. NOVAMIN [Concomitant]
     Indication: MULTIPLE MYELOMA
     Dosage: 10 MILLIGRAM
     Route: 048
     Dates: start: 20110322, end: 20110416
  10. DEXAMETHASONE ACETATE [Suspect]
     Indication: MULTIPLE MYELOMA
     Dosage: 20 MILLIGRAM
     Route: 048
     Dates: start: 20110322, end: 20110405
  11. MS CONTIN [Concomitant]
     Indication: MULTIPLE MYELOMA
     Dosage: 30 MILLIGRAM
     Route: 048
     Dates: start: 20110322, end: 20110426
  12. LANSOPRAZOLE [Concomitant]
     Indication: ILL-DEFINED DISORDER
     Dosage: 15 MILLIGRAM
     Route: 048
     Dates: start: 20110322, end: 20110416

REACTIONS (3)
  - INFLUENZA [None]
  - PNEUMONIA [None]
  - DEEP VEIN THROMBOSIS [None]
